FAERS Safety Report 20895164 (Version 4)
Quarter: 2022Q2

REPORT INFORMATION
  Report Type: Report from Study
  Country: ES (occurrence: ES)
  Receive Date: 20220531
  Receipt Date: 20220610
  Transmission Date: 20220720
  Serious: Yes (Hospitalization)
  Sender: FDA-Public Use
  Company Number: ES-ABBVIE-22K-144-4397663-00

PATIENT
  Sex: Male
  Weight: 70 kg

DRUGS (4)
  1. CARBIDOPA\LEVODOPA [Suspect]
     Active Substance: CARBIDOPA\LEVODOPA
     Indication: Parkinson^s disease
     Route: 050
     Dates: start: 20180917, end: 202205
  2. CARBIDOPA\LEVODOPA [Suspect]
     Active Substance: CARBIDOPA\LEVODOPA
  3. CARBIDOPA\LEVODOPA [Concomitant]
     Active Substance: CARBIDOPA\LEVODOPA
     Indication: Parkinson^s disease
     Route: 048
     Dates: start: 202205, end: 202205
  4. CARBIDOPA\LEVODOPA [Concomitant]
     Active Substance: CARBIDOPA\LEVODOPA
     Dosage: DOSES INCREASED
     Route: 048
     Dates: start: 202205

REACTIONS (4)
  - Intestinal obstruction [Recovered/Resolved]
  - Pneumonia [Not Recovered/Not Resolved]
  - Abdominal adhesions [Unknown]
  - Dysphagia [Unknown]

NARRATIVE: CASE EVENT DATE: 20220101
